FAERS Safety Report 4412227-3 (Version None)
Quarter: 2004Q3

REPORT INFORMATION
  Report Type: 
  Country: None (occurrence: None)
  Receive Date: 20040727
  Receipt Date: 20040715
  Transmission Date: 20050211
  Serious: Yes (Hospitalization)
  Sender: FDA-Public Use
  Company Number: US-JNJFOC-20040705769

PATIENT
  Age: 56 Year
  Sex: Female
  Weight: 72.5755 kg

DRUGS (4)
  1. MOTRIN [Suspect]
     Indication: ORTHODONTIC PROCEDURE
     Dosage: 800 MG, 1 IN 1 DAY, ORAL
     Route: 048
     Dates: start: 20040101
  2. PROTONIX [Concomitant]
  3. PREMARIN [Concomitant]
  4. SYNTHROID [Concomitant]

REACTIONS (3)
  - ABDOMINAL PAIN [None]
  - CHEST PAIN [None]
  - FAECAL OCCULT BLOOD POSITIVE [None]
